FAERS Safety Report 8537738-0 (Version None)
Quarter: 2012Q3

REPORT INFORMATION
  Report Type: 
  Country: None (occurrence: None)
  Receive Date: 20120725
  Receipt Date: 20120723
  Transmission Date: 20120928
  Serious: Yes (Hospitalization)
  Sender: FDA-Public Use
  Company Number: PHHY2012GB063091

PATIENT
  Age: 69 Year
  Sex: Female
  Weight: 70 kg

DRUGS (7)
  1. ASPIRIN [Concomitant]
  2. AMIODARONE HYDROCHLORIDE [Suspect]
     Indication: ATRIAL FIBRILLATION
     Dosage: 200 MG
     Route: 048
     Dates: start: 20120529, end: 20120629
  3. OMEPRAZOLE [Concomitant]
  4. PERINDOPRIL ERBUMINE [Concomitant]
  5. WARFARIN SODIUM [Concomitant]
  6. BISOPROLOL FUMARATE [Concomitant]
  7. SIMVASTATIN [Concomitant]

REACTIONS (2)
  - C-REACTIVE PROTEIN INCREASED [None]
  - PYREXIA [None]
